FAERS Safety Report 8063276-8 (Version None)
Quarter: 2012Q1

REPORT INFORMATION
  Report Type: 
  Country: None (occurrence: None)
  Receive Date: 20120123
  Receipt Date: 20120119
  Transmission Date: 20120608
  Serious: Yes (Death, Other)
  Sender: FDA-Public Use
  Company Number: PHHY2012DE005139

PATIENT
  Sex: Male
  Weight: 139 kg

DRUGS (7)
  1. RASILEZ [Suspect]
     Indication: HYPERTENSION
     Dosage: 300 MG PER DAY
     Route: 048
     Dates: start: 20081027
  2. SPIRONOLACTONE [Concomitant]
     Route: 048
     Dates: start: 20080829
  3. BISOPROLOL [Concomitant]
     Route: 048
     Dates: start: 20080829
  4. MARCUMAR [Concomitant]
     Route: 048
     Dates: start: 20080829
  5. TORSEMIDE [Concomitant]
     Route: 048
     Dates: start: 20080829
  6. XIPAMIDE [Concomitant]
     Route: 048
     Dates: start: 20080829
  7. SIMVASTATIN [Concomitant]
     Route: 048
     Dates: start: 20080829

REACTIONS (2)
  - CREATININE URINE INCREASED [None]
  - DEATH [None]
